FAERS Safety Report 6316592-1 (Version None)
Quarter: 2009Q3

REPORT INFORMATION
  Report Type: 
  Country: None (occurrence: None)
  Receive Date: 20090820
  Receipt Date: 20090812
  Transmission Date: 20100115
  Serious: Yes (Hospitalization)
  Sender: FDA-Public Use
  Company Number: CI-GILEAD-2009-0023715

PATIENT
  Age: 52 Year
  Sex: Female
  Weight: 52 kg

DRUGS (3)
  1. TRUVADA [Suspect]
     Indication: HIV INFECTION
     Dates: start: 20080520
  2. EFAVIRENZ [Concomitant]
     Indication: HIV INFECTION
     Dates: start: 20080520
  3. COTRIM [Concomitant]
     Indication: OPPORTUNISTIC INFECTION
     Dates: start: 20080513

REACTIONS (1)
  - ISCHAEMIC STROKE [None]
